APPROVED DRUG PRODUCT: DOXEPIN HYDROCHLORIDE
Active Ingredient: DOXEPIN HYDROCHLORIDE
Strength: EQ 150MG BASE
Dosage Form/Route: CAPSULE;ORAL
Application: A072376 | Product #001
Applicant: QUANTUM PHARMICS LTD
Approved: Mar 15, 1989 | RLD: No | RS: No | Type: DISCN